FAERS Safety Report 12429114 (Version 1)
Quarter: 2016Q2

REPORT INFORMATION
  Report Type: Spontaneous
  Country: US (occurrence: US)
  Receive Date: 20160602
  Receipt Date: 20160602
  Transmission Date: 20160815
  Serious: No
  Sender: FDA-Public Use
  Company Number: US-TEIKOKU PHARMA USA-TPU2016-00347

PATIENT
  Sex: Female

DRUGS (2)
  1. LIDODERM [Suspect]
     Active Substance: LIDOCAINE
     Indication: NEURALGIA
     Route: 061
     Dates: start: 2006, end: 201602
  2. LIDODERM [Suspect]
     Active Substance: LIDOCAINE
     Indication: ARTHRITIS

REACTIONS (5)
  - Hypersensitivity [Not Recovered/Not Resolved]
  - Bladder disorder [Not Recovered/Not Resolved]
  - General symptom [Not Recovered/Not Resolved]
  - Back injury [Not Recovered/Not Resolved]
  - Scoliosis [Not Recovered/Not Resolved]
